FAERS Safety Report 5075563-6 (Version None)
Quarter: 2006Q3

REPORT INFORMATION
  Report Type: 
  Country: None (occurrence: None)
  Receive Date: 20060809
  Receipt Date: 20060803
  Transmission Date: 20061208
  Serious: Yes (Hospitalization)
  Sender: FDA-Public Use
  Company Number: NZ-ROCHE-458068

PATIENT
  Age: 76 Year
  Sex: Male

DRUGS (11)
  1. XENICAL [Suspect]
     Indication: DRUG USE FOR UNKNOWN INDICATION
     Dosage: PATIENT WAS TAKING ORLISTAT FOR 3-4 YEARS.
     Route: 048
  2. FLUTAMIDE [Concomitant]
  3. OXYBUTYNIN [Concomitant]
  4. ASPIRIN [Concomitant]
  5. LIPEX [Concomitant]
  6. CALCIUM CARBONATE [Concomitant]
  7. CALCIFEROL [Concomitant]
  8. PROTAPHANE [Concomitant]
     Dosage: REPORTED AS INSULIN-PROTAPHANE AND PERMIX
  9. LACTULOSE [Concomitant]
  10. LAXOL [Concomitant]
  11. MORPHINE [Concomitant]

REACTIONS (3)
  - CREATININE RENAL CLEARANCE INCREASED [None]
  - FALL [None]
  - HIP FRACTURE [None]
